FAERS Safety Report 4947472-1 (Version None)
Quarter: 2006Q1

REPORT INFORMATION
  Report Type: 
  Country: None (occurrence: None)
  Receive Date: 20060313
  Receipt Date: 20060228
  Transmission Date: 20060701
  Serious: Yes (Other)
  Sender: FDA-Public Use
  Company Number: 2006030431

PATIENT
  Sex: Male
  Weight: 90.7194 kg

DRUGS (6)
  1. DOXAZOSIN (DOXAZOSIN) [Suspect]
     Indication: HYPERTENSION
     Dates: end: 20060227
  2. LIPITOR [Suspect]
     Indication: BLOOD CHOLESTEROL INCREASED
     Dosage: 10 MG (10MG, 1 IN 1 D)
     Dates: start: 20060208, end: 20060214
  3. FELDENE [Concomitant]
  4. ALL OTHER THERAPEUTIC PRODUCTS (ALL OTHER THERAPEUTIC PRODUCTS) [Concomitant]
  5. VITAMINS (VITAMINS) [Concomitant]
  6. ASPIRIN [Concomitant]

REACTIONS (16)
  - ASTHENIA [None]
  - BLOOD CHOLESTEROL INCREASED [None]
  - CHILLS [None]
  - DIZZINESS [None]
  - DRY MOUTH [None]
  - DYSPNOEA [None]
  - FALL [None]
  - GASTRIC HAEMORRHAGE [None]
  - HEADACHE [None]
  - HYPERTENSION [None]
  - HYPOAESTHESIA [None]
  - MUSCLE DISORDER [None]
  - PALPITATIONS [None]
  - PYREXIA [None]
  - THERAPY NON-RESPONDER [None]
  - TINNITUS [None]
